FAERS Safety Report 11423828 (Version 1)
Quarter: 2015Q3

REPORT INFORMATION
  Report Type: Spontaneous
  Country: US (occurrence: US)
  Receive Date: 20150827
  Receipt Date: 20150827
  Transmission Date: 20151125
  Serious: No
  Sender: FDA-Public Use
  Company Number: US-JNJFOC-20150422550

PATIENT
  Age: 23 Year
  Sex: Female
  Weight: 40.82 kg

DRUGS (4)
  1. CHILDRENS TYLENOL [Suspect]
     Active Substance: ACETAMINOPHEN
     Route: 065
  2. CHILDRENS MOTRIN [Suspect]
     Active Substance: IBUPROFEN
     Route: 050
  3. CHILDRENS MOTRIN [Suspect]
     Active Substance: IBUPROFEN
     Indication: DYSMENORRHOEA
     Dosage: 3 TEASPOONS, EVERY 6 HOURS
     Route: 050
  4. CHILDRENS TYLENOL [Suspect]
     Active Substance: ACETAMINOPHEN
     Indication: PYREXIA
     Dosage: 3 TEASPOONS AS NEEDED EVERY 4-6 HOURS
     Route: 065

REACTIONS (3)
  - Wrong technique in product usage process [Unknown]
  - Wrong drug administered [Unknown]
  - Off label use [Unknown]
